FAERS Safety Report 10186317 (Version 1)
Quarter: 2014Q2

REPORT INFORMATION
  Report Type: Spontaneous
  Country: US (occurrence: US)
  Receive Date: 20140521
  Receipt Date: 20140521
  Transmission Date: 20141212
  Serious: Yes (Other)
  Sender: FDA-Public Use
  Company Number: US-JNJFOC-20140509585

PATIENT
  Sex: Female
  Weight: 73.94 kg

DRUGS (11)
  1. REMICADE [Suspect]
     Indication: PSORIATIC ARTHROPATHY
     Route: 042
     Dates: start: 20140507
  2. REMICADE [Suspect]
     Indication: PSORIATIC ARTHROPATHY
     Route: 042
     Dates: start: 2006, end: 2014
  3. REMICADE [Suspect]
     Indication: PSORIASIS
     Route: 042
     Dates: start: 20140507
  4. REMICADE [Suspect]
     Indication: PSORIASIS
     Route: 042
     Dates: start: 2006, end: 2014
  5. IMURAN [Suspect]
     Indication: PANEL-REACTIVE ANTIBODY
     Route: 065
  6. NORCO [Concomitant]
     Indication: PAIN
     Route: 065
  7. IBUPROFEN [Concomitant]
     Indication: PAIN
     Route: 065
  8. ACETAMINOPHEN [Concomitant]
     Indication: PAIN
     Route: 065
  9. BETAMETHASONE [Concomitant]
     Indication: PSORIASIS
     Route: 065
  10. TIZANIDINE [Concomitant]
     Indication: PAIN
     Route: 065
  11. ACARBOSE [Concomitant]
     Indication: HYPERTROPHY
     Route: 065

REACTIONS (5)
  - Pulmonary hypertension [Not Recovered/Not Resolved]
  - Catheterisation cardiac [Not Recovered/Not Resolved]
  - Macrocytosis [Not Recovered/Not Resolved]
  - Drug specific antibody present [Not Recovered/Not Resolved]
  - Drug effect decreased [Not Recovered/Not Resolved]
